FAERS Safety Report 19306887 (Version 1)
Quarter: 2021Q2

REPORT INFORMATION
  Report Type: Spontaneous
  Country: CN (occurrence: CN)
  Receive Date: 20210526
  Receipt Date: 20210526
  Transmission Date: 20210717
  Serious: Yes (Other)
  Sender: FDA-Public Use
  Company Number: CN-NOVAST LABORATORIES LTD.-2021NOV000263

PATIENT
  Age: 61 Year
  Sex: Female

DRUGS (3)
  1. LAPATINIB [Suspect]
     Active Substance: LAPATINIB
     Indication: HER2 POSITIVE BREAST CANCER
     Dosage: 1250 MILLIGRAM/ DAY
     Route: 065
  2. VINORELBINE [Suspect]
     Active Substance: VINORELBINE TARTRATE
     Indication: HER2 POSITIVE BREAST CANCER
     Dosage: 80 MILLIGRAM ON DAY 1 AND 8, EVERY 3 WEEKS
     Route: 065
  3. VINORELBINE [Suspect]
     Active Substance: VINORELBINE TARTRATE
     Dosage: 40 MILLIGRAM ON DAYS 1 AND 8 EVERY 3 WEEKS
     Route: 065

REACTIONS (2)
  - Drug-induced liver injury [Unknown]
  - Cholangitis sclerosing [Unknown]
